FAERS Safety Report 14539722 (Version 1)
Quarter: 2018Q1

REPORT INFORMATION
  Report Type: Spontaneous
  Country: US (occurrence: US)
  Receive Date: 20180215
  Receipt Date: 20180215
  Transmission Date: 20180509
  Serious: No
  Sender: FDA-Public Use
  Company Number: None

PATIENT

DRUGS (1)
  1. TROSPIUM CHLORIDE ER [Suspect]
     Active Substance: TROSPIUM CHLORIDE

REACTIONS (1)
  - Drug ineffective [None]
